FAERS Safety Report 4666337-6 (Version None)
Quarter: 2005Q2

REPORT INFORMATION
  Report Type: 
  Country: None (occurrence: None)
  Receive Date: 20050517
  Receipt Date: 20050502
  Transmission Date: 20051028
  Serious: Yes (Death)
  Sender: FDA-Public Use
  Company Number: USA050189378

PATIENT
  Age: 44 Year
  Sex: Female

DRUGS (4)
  1. ZYPREXA [Suspect]
     Indication: BIPOLAR DISORDER
     Dosage: 5 MG/1 DAY
     Dates: start: 20040203
  2. NEURONTIN (GABAPENTIN PFIZER) [Concomitant]
  3. EFFEXOR [Concomitant]
  4. LEXAPRO [Concomitant]

REACTIONS (4)
  - COMA [None]
  - FALL [None]
  - HAEMORRHAGE INTRACRANIAL [None]
  - VOMITING [None]
